FAERS Safety Report 10169060 (Version 1)
Quarter: 2014Q2

REPORT INFORMATION
  Report Type: Spontaneous
  Country: CA (occurrence: None)
  Receive Date: 20140512
  Receipt Date: 20140512
  Transmission Date: 20141212
  Serious: No
  Sender: FDA-Public Use
  Company Number: None

PATIENT
  Age: 53 Year
  Sex: Female
  Weight: 60 kg

DRUGS (2)
  1. CYTARABINE [Suspect]
     Dates: end: 20140403
  2. DAUNORUBICIN [Suspect]
     Dates: end: 20140330

REACTIONS (3)
  - Medical device complication [None]
  - Thrombosis in device [None]
  - Intracardiac thrombus [None]
